FAERS Safety Report 7197738-2 (Version None)
Quarter: 2010Q4

REPORT INFORMATION
  Report Type: 
  Country: None (occurrence: None)
  Receive Date: 20101227
  Receipt Date: 20101216
  Transmission Date: 20110411
  Serious: Yes (Other)
  Sender: FDA-Public Use
  Company Number: US-SANOFI-AVENTIS-2010SA076915

PATIENT
  Age: 66 Year
  Sex: Female

DRUGS (5)
  1. LANTUS [Suspect]
     Dosage: DOSE:40 UNIT(S)
     Route: 058
     Dates: start: 20090101
  2. JANUVIA [Concomitant]
  3. GLUCOPHAGE [Concomitant]
  4. COUMADIN [Concomitant]
  5. LOVENOX [Concomitant]

REACTIONS (6)
  - DECREASED APPETITE [None]
  - GLYCOSYLATED HAEMOGLOBIN INCREASED [None]
  - HYPERGLYCAEMIA [None]
  - INSOMNIA [None]
  - SOMNOLENCE [None]
  - THROMBOSIS [None]
